FAERS Safety Report 9270394 (Version 2)
Quarter: 2013Q2

REPORT INFORMATION
  Report Type: Spontaneous
  Country: RS (occurrence: RS)
  Receive Date: 20130503
  Receipt Date: 20130605
  Transmission Date: 20140414
  Serious: Yes (Other)
  Sender: FDA-Public Use
  Company Number: RS-TEVA-401104ISR

PATIENT
  Sex: Female

DRUGS (5)
  1. PACLITAXEL [Suspect]
     Route: 042
     Dates: start: 20130412, end: 20130511
  2. RANISAN AMP [Concomitant]
     Dosage: 1 AMPOULE
     Route: 042
  3. KLOMETOL AMP [Concomitant]
     Dosage: AMPOULE
     Route: 042
  4. SYNOPEN AMP [Concomitant]
     Dosage: AMPOULE
     Route: 042
  5. DEXASON [Concomitant]
     Dosage: 2 AMPOULES
     Route: 042

REACTIONS (13)
  - Erythema [Recovered/Resolved]
  - Flushing [Recovered/Resolved]
  - Blood pressure abnormal [Recovered/Resolved]
  - Back pain [Recovered/Resolved]
  - Choking [Recovered/Resolved]
  - Chest discomfort [Recovered/Resolved]
  - Sensation of heaviness [Unknown]
  - Bone pain [Unknown]
  - Stomatitis [Unknown]
  - Face oedema [Unknown]
  - Oedema mouth [Unknown]
  - Fatigue [Unknown]
  - Throat tightness [Unknown]
